FAERS Safety Report 11469450 (Version 2)
Quarter: 2015Q3

REPORT INFORMATION
  Report Type: Spontaneous
  Country: US (occurrence: US)
  Receive Date: 20150903
  Receipt Date: 20150903
  Transmission Date: 20151125
  Serious: No
  Sender: FDA-Public Use
  Company Number: US-ELI_LILLY_AND_COMPANY-US201110002394

PATIENT
  Sex: Female

DRUGS (3)
  1. CYMBALTA [Suspect]
     Active Substance: DULOXETINE HYDROCHLORIDE
     Dosage: 30 MG, UNKNOWN
     Dates: start: 20110720, end: 20110727
  2. XANAX                                   /USA/ [Concomitant]
     Indication: ANXIETY
  3. CYMBALTA [Suspect]
     Active Substance: DULOXETINE HYDROCHLORIDE
     Indication: FIBROMYALGIA
     Dosage: UNK, UNKNOWN

REACTIONS (17)
  - Sciatica [Unknown]
  - Muscle spasms [Unknown]
  - Fatigue [Unknown]
  - Insomnia [Unknown]
  - Agitation [Unknown]
  - Decreased appetite [Unknown]
  - Yawning [Unknown]
  - Anger [Unknown]
  - Paraesthesia [Unknown]
  - Drug ineffective [Recovered/Resolved]
  - Headache [Unknown]
  - Abnormal behaviour [Unknown]
  - Anxiety [Unknown]
  - Face oedema [Unknown]
  - Tremor [Unknown]
  - Tension [Unknown]
  - Feeling abnormal [Unknown]

NARRATIVE: CASE EVENT DATE: 20110720
